FAERS Safety Report 10664095 (Version 3)
Quarter: 2015Q3

REPORT INFORMATION
  Report Type: Spontaneous
  Country: GB (occurrence: GB)
  Receive Date: 20141219
  Receipt Date: 20150827
  Transmission Date: 20151125
  Serious: Yes (Hospitalization, Other)
  Sender: FDA-Public Use
  Company Number: PHFR2014GB008518

PATIENT
  Age: 23 Year
  Sex: Male

DRUGS (4)
  1. CLOZARIL [Suspect]
     Active Substance: CLOZAPINE
     Dosage: 250 MG, QD
     Route: 048
     Dates: start: 20141203
  2. CLOZARIL [Suspect]
     Active Substance: CLOZAPINE
     Indication: SCHIZOPHRENIA
     Dosage: 475 MG, QD (AT NIGHT)
     Route: 048
     Dates: start: 20080123
  3. CLOZARIL [Suspect]
     Active Substance: CLOZAPINE
     Dosage: 950 MG, QD
     Route: 048
     Dates: start: 20141202
  4. CLOZARIL [Suspect]
     Active Substance: CLOZAPINE
     Dosage: 475 MG, QD
     Route: 048
     Dates: start: 20141204

REACTIONS (4)
  - Neutrophil count increased [Unknown]
  - Accidental overdose [Recovered/Resolved]
  - White blood cell count increased [Unknown]
  - Tachycardia [Recovered/Resolved]

NARRATIVE: CASE EVENT DATE: 20141202
